FAERS Safety Report 23999031 (Version 2)
Quarter: 2024Q3

REPORT INFORMATION
  Report Type: Spontaneous
  Country: US (occurrence: US)
  Receive Date: 20240621
  Receipt Date: 20240723
  Transmission Date: 20241017
  Serious: Yes (Other)
  Sender: ALVOGEN
  Company Number: US-BMS-IMIDS-REMS_SI-11553127

PATIENT
  Sex: Female

DRUGS (1)
  1. LENALIDOMIDE [Suspect]
     Active Substance: LENALIDOMIDE
     Indication: Plasma cell myeloma
     Dosage: 5 MG?FREQUENCY: 09?28 DAYS
     Dates: start: 20240313

REACTIONS (1)
  - Human chorionic gonadotropin increased [Unknown]
